FAERS Safety Report 24743960 (Version 5)
Quarter: 2025Q2

REPORT INFORMATION
  Report Type: Spontaneous
  Country: US (occurrence: US)
  Receive Date: 20241217
  Receipt Date: 20250423
  Transmission Date: 20250717
  Serious: No
  Sender: ROCHE
  Company Number: US-ROCHE-10000158223

PATIENT
  Age: 2 Year
  Sex: Male

DRUGS (8)
  1. HEMLIBRA [Suspect]
     Active Substance: EMICIZUMAB-KXWH
     Indication: Factor VIII deficiency
     Dosage: FORM STRENGTH: 30MG/ML?FORM STRENGTH: 60MG/0.4ML
     Route: 058
     Dates: start: 202308
  2. HEMLIBRA [Suspect]
     Active Substance: EMICIZUMAB-KXWH
     Dosage: STRENGTH: 60MG/0.4ML
     Route: 058
     Dates: start: 202308
  3. HEMLIBRA [Suspect]
     Active Substance: EMICIZUMAB-KXWH
     Dosage: STRENGTH: 30MG/ML
     Route: 058
     Dates: start: 202308
  4. LIDOCAINE\PRILOCAINE [Concomitant]
     Active Substance: LIDOCAINE\PRILOCAINE
  5. NOVOSEVEN RT MP [Concomitant]
  6. NUWIQ [Concomitant]
     Active Substance: ANTIHEMOPHILIC FACTOR, HUMAN RECOMBINANT
  7. HEPARIN [Concomitant]
     Active Substance: HEPARIN SODIUM
  8. AMINOCAPROIC ACID ORAL SOLUTION [Concomitant]

REACTIONS (4)
  - Mouth haemorrhage [Recovered/Resolved]
  - Fall [Unknown]
  - Mouth injury [Unknown]
  - Haemorrhage [Unknown]

NARRATIVE: CASE EVENT DATE: 20241204
